FAERS Safety Report 24964346 (Version 1)
Quarter: 2025Q1

REPORT INFORMATION
  Report Type: Spontaneous
  Country: TR (occurrence: TR)
  Receive Date: 20250213
  Receipt Date: 20250213
  Transmission Date: 20250409
  Serious: Yes (Hospitalization, Other)
  Sender: NOVARTIS
  Company Number: TR-002147023-NVSC2025TR022005

PATIENT
  Age: 65 Year
  Sex: Female

DRUGS (1)
  1. TRILEPTAL [Suspect]
     Active Substance: OXCARBAZEPINE
     Indication: Bipolar disorder
     Route: 065

REACTIONS (4)
  - Illness [Unknown]
  - Bipolar disorder [Unknown]
  - Product supply issue [Unknown]
  - Off label use [Unknown]
